FAERS Safety Report 9255310 (Version 1)
Quarter: 2013Q2

REPORT INFORMATION
  Report Type: Spontaneous
  Country: US (occurrence: US)
  Receive Date: 20130425
  Receipt Date: 20130425
  Transmission Date: 20140414
  Serious: No
  Sender: FDA-Public Use
  Company Number: US-ASTRAZENECA-2013SE25327

PATIENT
  Sex: Female

DRUGS (2)
  1. TENORMIN [Suspect]
     Indication: BLOOD PRESSURE
     Route: 048
  2. TENORMIN [Suspect]
     Indication: BLOOD PRESSURE
     Route: 048

REACTIONS (5)
  - Fall [Unknown]
  - Contusion [Unknown]
  - Pain [Unknown]
  - Hypertension [Not Recovered/Not Resolved]
  - Drug ineffective [Unknown]
